FAERS Safety Report 5939214-8 (Version None)
Quarter: 2008Q4

REPORT INFORMATION
  Report Type: 
  Country: None (occurrence: None)
  Receive Date: 20081103
  Receipt Date: 20081028
  Transmission Date: 20090506
  Serious: Yes (Other)
  Sender: FDA-Public Use
  Company Number: IL-AVENTIS-200820211GDDC

PATIENT
  Sex: Female

DRUGS (2)
  1. TAXOTERE [Suspect]
     Dosage: DOSE: UNK
     Route: 041
  2. NEUPOGEN [Concomitant]

REACTIONS (2)
  - PANIC ATTACK [None]
  - SUICIDAL IDEATION [None]
